FAERS Safety Report 23485035 (Version 1)
Quarter: 2024Q1

REPORT INFORMATION
  Report Type: Spontaneous
  Country: US (occurrence: US)
  Receive Date: 20240206
  Receipt Date: 20240206
  Transmission Date: 20240409
  Serious: Yes (Other)
  Sender: FDA-Public Use
  Company Number: US-SA-SAC20240131000213

PATIENT
  Age: 4 Year
  Sex: Male
  Weight: 13.1 kg

DRUGS (12)
  1. CEREZYME [Suspect]
     Active Substance: IMIGLUCERASE
     Indication: Gaucher^s disease
     Dosage: 400 U, QOW
     Route: 042
     Dates: start: 20230901
  2. ACETAMINOPHEN [Concomitant]
     Active Substance: ACETAMINOPHEN
  3. EPINEPHRINE [Concomitant]
     Active Substance: EPINEPHRINE
  4. SODIUM CHLORIDE [Concomitant]
     Active Substance: SODIUM CHLORIDE
  5. STERILE WATER [Concomitant]
     Active Substance: WATER
  6. HEPARIN [Concomitant]
     Active Substance: HEPARIN SODIUM
  7. FYCOMPA [Concomitant]
     Active Substance: PERAMPANEL
  8. DIPHENHYDRAMINE [Concomitant]
     Active Substance: DIPHENHYDRAMINE
  9. SODIUM CHLORIDE [Concomitant]
     Active Substance: SODIUM CHLORIDE
  10. CLARITIN [Concomitant]
     Active Substance: LORATADINE
  11. LIDOCAINE [Concomitant]
     Active Substance: LIDOCAINE
  12. ZYRTEC [Concomitant]
     Active Substance: CETIRIZINE HYDROCHLORIDE

REACTIONS (6)
  - Seizure [Recovered/Resolved]
  - Unresponsive to stimuli [Unknown]
  - Pallor [Unknown]
  - Musculoskeletal stiffness [Unknown]
  - Hypotonia [Unknown]
  - Fatigue [Unknown]
